FAERS Safety Report 6096717-6 (Version None)
Quarter: 2009Q1

REPORT INFORMATION
  Report Type: 
  Country: None (occurrence: None)
  Receive Date: 20090225
  Receipt Date: 20090225
  Transmission Date: 20090719
  Serious: No
  Sender: FDA-Public Use
  Company Number: None

PATIENT
  Age: 48 Year
  Sex: Male
  Weight: 97.98 kg

DRUGS (1)
  1. FENTANYL-25 [Suspect]
     Indication: PAIN
     Dosage: 25 MCG OTHER TOP
     Route: 061
     Dates: start: 20081218, end: 20090117

REACTIONS (1)
  - APPLICATION SITE RASH [None]
